FAERS Safety Report 14987174 (Version 3)
Quarter: 2018Q4

REPORT INFORMATION
  Report Type: Report from Study
  Country: None (occurrence: US)
  Receive Date: 20180608
  Receipt Date: 20181002
  Transmission Date: 20190204
  Serious: Yes (Other)
  Sender: FDA-Public Use
  Company Number: US-ABBVIE-18K-163-2306268-00

PATIENT
  Age: 53 Year
  Sex: Female

DRUGS (1)
  1. HUMIRA [Suspect]
     Active Substance: ADALIMUMAB
     Indication: HIDRADENITIS
     Route: 058
     Dates: start: 2013

REACTIONS (26)
  - Chills [Unknown]
  - Menopause [Unknown]
  - Neuropathy peripheral [Not Recovered/Not Resolved]
  - Blood glucose fluctuation [Not Recovered/Not Resolved]
  - Mobility decreased [Unknown]
  - Muscle spasms [Recovered/Resolved]
  - Constipation [Unknown]
  - Gastrooesophageal reflux disease [Not Recovered/Not Resolved]
  - Malaise [Unknown]
  - Sinus disorder [Unknown]
  - Hot flush [Not Recovered/Not Resolved]
  - Furuncle [Unknown]
  - Hypotension [Recovering/Resolving]
  - Adhesion [Unknown]
  - Fall [Unknown]
  - Feeling of body temperature change [Not Recovered/Not Resolved]
  - Vertigo [Unknown]
  - Infection susceptibility increased [Unknown]
  - Large intestinal obstruction [Unknown]
  - Intervertebral disc protrusion [Not Recovered/Not Resolved]
  - Cyst [Unknown]
  - Hidradenitis [Not Recovered/Not Resolved]
  - Sciatica [Unknown]
  - Fatigue [Unknown]
  - Diarrhoea [Not Recovered/Not Resolved]
  - Pyrexia [Not Recovered/Not Resolved]

NARRATIVE: CASE EVENT DATE: 2018
